FAERS Safety Report 17270824 (Version 1)
Quarter: 2020Q1

REPORT INFORMATION
  Report Type: Spontaneous
  Country: US (occurrence: US)
  Receive Date: 20200115
  Receipt Date: 20200115
  Transmission Date: 20200409
  Serious: Yes (Other)
  Sender: FDA-Public Use
  Company Number: US-LUPIN PHARMACEUTICALS INC.-2020-00077

PATIENT
  Age: 24 Year
  Sex: Female

DRUGS (12)
  1. HYDROXYCHLOROQUINE SULFATE. [Suspect]
     Active Substance: HYDROXYCHLOROQUINE SULFATE
     Indication: LUPUS NEPHRITIS
     Dosage: 0.2 MILLIGRAM IN A SOLUTION OF 0.4 ML
     Route: 065
  2. HYDROXYCHLOROQUINE SULFATE. [Suspect]
     Active Substance: HYDROXYCHLOROQUINE SULFATE
     Dosage: 1.6 MILLIGRAM IN A SOLUTION OF 3.1 ML (1.5 HOURS)
     Route: 065
  3. HYDROXYCHLOROQUINE SULFATE. [Suspect]
     Active Substance: HYDROXYCHLOROQUINE SULFATE
     Dosage: 0.4 MILLIGRAM IN A SOLUTION OF 0.8 ML, (0.5 HOURS)
     Route: 065
  4. HYDROXYCHLOROQUINE SULFATE. [Suspect]
     Active Substance: HYDROXYCHLOROQUINE SULFATE
     Dosage: 0.8 MILLIGRAM IN A SOLUTION OF 1.6 ML (1 HOURS)
     Route: 065
  5. HYDROXYCHLOROQUINE SULFATE. [Suspect]
     Active Substance: HYDROXYCHLOROQUINE SULFATE
     Dosage: 12.5 MILLIGRAM IN A SOLUTION OF 25.0 ML (3.0 HOURS)
     Route: 065
  6. HYDROXYCHLOROQUINE SULFATE. [Suspect]
     Active Substance: HYDROXYCHLOROQUINE SULFATE
     Dosage: 25.0 MILLIGRAM IN A SOLUTION OF 50 ML (3.5 HOURS)
     Route: 065
  7. HYDROXYCHLOROQUINE SULFATE TABLETS [Suspect]
     Active Substance: HYDROXYCHLOROQUINE SULFATE
     Indication: LUPUS NEPHRITIS
     Dosage: 100 MILLIGRAM, UNK (4.5 HOURS)
     Route: 065
  8. HYDROXYCHLOROQUINE SULFATE. [Suspect]
     Active Substance: HYDROXYCHLOROQUINE SULFATE
     Dosage: 3.1 MILLIGRAM IN A SOLUTION OF 6.3 ML (2.0 HOURS)
     Route: 065
  9. HYDROXYCHLOROQUINE SULFATE TABLETS [Suspect]
     Active Substance: HYDROXYCHLOROQUINE SULFATE
     Dosage: 100 MILLIGRAM, UNK (5 HOURS)
     Route: 065
  10. HYDROXYCHLOROQUINE SULFATE. [Suspect]
     Active Substance: HYDROXYCHLOROQUINE SULFATE
     Dosage: 50 MILLIGRAM IN A SOLUTION OF 100 ML (4.0 HOURS)
     Route: 065
  11. HYDROXYCHLOROQUINE SULFATE TABLETS [Suspect]
     Active Substance: HYDROXYCHLOROQUINE SULFATE
     Dosage: 100 MILLIGRAM, QD (MAINTAINED AS A DAILY MEDICATION)
     Route: 065
  12. HYDROXYCHLOROQUINE SULFATE. [Suspect]
     Active Substance: HYDROXYCHLOROQUINE SULFATE
     Dosage: 6.3 MILLIGRAM IN A SOLUTION OF 12.5 ML (2.5 HOURS)
     Route: 065

REACTIONS (5)
  - Urticaria [Recovered/Resolved]
  - Type IV hypersensitivity reaction [Recovered/Resolved]
  - Pruritus [Recovered/Resolved]
  - Oral discomfort [Recovered/Resolved]
  - Dry skin [Recovered/Resolved]
